FAERS Safety Report 14094542 (Version 1)
Quarter: 2017Q4

REPORT INFORMATION
  Report Type: Spontaneous
  Country: CN (occurrence: CN)
  Receive Date: 20171016
  Receipt Date: 20171016
  Transmission Date: 20180321
  Serious: Yes (Hospitalization, Other)
  Sender: FDA-Public Use
  Company Number: CN-PFIZER INC-2017438720

PATIENT
  Age: 87 Year
  Sex: Female

DRUGS (1)
  1. DIFLUCAN [Suspect]
     Active Substance: FLUCONAZOLE
     Indication: PNEUMONIA FUNGAL
     Dosage: 0.1 G, 2X/DAY
     Route: 048
     Dates: start: 20170618, end: 20170702

REACTIONS (3)
  - Sinus arrest [Recovering/Resolving]
  - Heart rate decreased [Recovering/Resolving]
  - Sinoatrial block [Recovering/Resolving]

NARRATIVE: CASE EVENT DATE: 20170626
